FAERS Safety Report 10221285 (Version 1)
Quarter: 2014Q2

REPORT INFORMATION
  Report Type: Spontaneous
  Country: US (occurrence: None)
  Receive Date: 20140604
  Receipt Date: 20140604
  Transmission Date: 20141212
  Serious: Yes (Death)
  Sender: FDA-Public Use
  Company Number: 1713747-2014-99980

PATIENT
  Age: 64 Year
  Sex: Female
  Weight: 118 kg

DRUGS (6)
  1. SALINE [Suspect]
     Indication: RENAL FAILURE CHRONIC
     Dosage: HEMODIALYSIS
     Dates: start: 20130116
  2. GRANUFLO [Concomitant]
  3. NATURALYTE [Concomitant]
  4. FMC DIALYZER [Concomitant]
  5. FMC BLOOD LINES [Concomitant]
  6. FMC HEMODIALYSIS SYSTEM [Concomitant]

REACTIONS (1)
  - Cardiovascular disorder [None]
